FAERS Safety Report 6839345-4 (Version None)
Quarter: 2010Q3

REPORT INFORMATION
  Report Type: 
  Country: None (occurrence: None)
  Receive Date: 20100714
  Receipt Date: 20100702
  Transmission Date: 20110219
  Serious: Yes (Other)
  Sender: FDA-Public Use
  Company Number: PHHY2010US43405

PATIENT
  Sex: Female

DRUGS (11)
  1. EXELON [Suspect]
     Dosage: 9.5 MG
     Route: 062
     Dates: start: 20100501
  2. RECLAST [Suspect]
  3. ARICEPT [Suspect]
  4. CARDIZEN [Concomitant]
  5. RYTHMOL [Concomitant]
  6. PROPASENONE [Concomitant]
  7. COUMADIN [Concomitant]
  8. LOSARTAN POSTASSIUM [Concomitant]
  9. PRAVASTATIN [Concomitant]
  10. ACTONEL [Concomitant]
  11. NAMENDA [Concomitant]

REACTIONS (2)
  - BOWEL MOVEMENT IRREGULARITY [None]
  - LUNG DISORDER [None]
